FAERS Safety Report 5850739-6 (Version None)
Quarter: 2008Q3

REPORT INFORMATION
  Report Type: 
  Country: None (occurrence: None)
  Receive Date: 20080819
  Receipt Date: 20080819
  Transmission Date: 20090109
  Serious: Yes (Other)
  Sender: FDA-Public Use
  Company Number: None

PATIENT
  Age: 45 Year
  Sex: Female
  Weight: 68.0396 kg

DRUGS (2)
  1. CYMBALTA [Suspect]
     Indication: MIGRAINE
     Dosage: 30 MG ONCE DAILY PO; 60 MG ONCE DAILY PO
     Route: 048
     Dates: start: 20080423, end: 20080625
  2. CYMBALTA [Suspect]
     Indication: MIGRAINE
     Dosage: 30 MG ONCE DAILY PO; 60 MG ONCE DAILY PO
     Route: 048
     Dates: start: 20080626, end: 20080813

REACTIONS (13)
  - CRYING [None]
  - DIARRHOEA [None]
  - DISTURBANCE IN ATTENTION [None]
  - DRUG WITHDRAWAL SYNDROME [None]
  - EMOTIONAL DISORDER [None]
  - GLOSSODYNIA [None]
  - HEADACHE [None]
  - LETHARGY [None]
  - MUSCLE TWITCHING [None]
  - NAUSEA [None]
  - NIGHTMARE [None]
  - PARAESTHESIA [None]
  - SWOLLEN TONGUE [None]
